FAERS Safety Report 9417191 (Version 1)
Quarter: 2013Q3

REPORT INFORMATION
  Report Type: Spontaneous
  Country: None (occurrence: None)
  Receive Date: 20130722
  Receipt Date: 20130722
  Transmission Date: 20140515
  Serious: Yes (Other)
  Sender: FDA-Public Use
  Company Number: 2013P1011890

PATIENT
  Age: 24 Year
  Sex: Male

DRUGS (8)
  1. FLUOXETINE [Suspect]
     Indication: DEPRESSION
  2. MEPERIDINE [Suspect]
     Indication: PAIN MANAGEMENT
     Route: 030
  3. MEPERIDINE [Suspect]
     Indication: LACERATION
     Route: 030
  4. FENTANYL [Suspect]
     Indication: INDUCTION OF ANAESTHESIA
     Route: 042
  5. PROPOFOL [Concomitant]
  6. MORPHINE [Concomitant]
  7. SEVOFLURANE [Concomitant]
  8. MIDAZOLAM [Concomitant]

REACTIONS (9)
  - Procedural headache [None]
  - Dyspnoea [None]
  - Somnolence [None]
  - Loss of consciousness [None]
  - Tremor [None]
  - Unresponsive to stimuli [None]
  - Serotonin syndrome [None]
  - Drug interaction [None]
  - Toxicity to various agents [None]
